FAERS Safety Report 6359230-4 (Version None)
Quarter: 2009Q3

REPORT INFORMATION
  Report Type: 
  Country: None (occurrence: None)
  Receive Date: 20090917
  Receipt Date: 20090909
  Transmission Date: 20100115
  Serious: Yes (Other)
  Sender: FDA-Public Use
  Company Number: PHEH2009US10699

PATIENT
  Sex: Female

DRUGS (2)
  1. COMTAN [Suspect]
     Dosage: UNK
  2. SINEMET [Concomitant]

REACTIONS (2)
  - FUNGAL INFECTION [None]
  - MALIGNANT MELANOMA [None]
